FAERS Safety Report 8412309-5 (Version None)
Quarter: 2012Q2

REPORT INFORMATION
  Report Type: 
  Country: None (occurrence: None)
  Receive Date: 20120531
  Receipt Date: 20120531
  Transmission Date: 20120825
  Serious: Yes (Hospitalization)
  Sender: FDA-Public Use
  Company Number: None

PATIENT
  Sex: Female
  Weight: 54.55 kg

DRUGS (1)
  1. CARBOPLATIN [Suspect]
     Dosage: 336 MG

REACTIONS (7)
  - NAUSEA [None]
  - DISORIENTATION [None]
  - ENTERITIS [None]
  - BLOOD GLUCOSE INCREASED [None]
  - CONFUSIONAL STATE [None]
  - BLOOD ALBUMIN DECREASED [None]
  - VOMITING [None]
